FAERS Safety Report 11695702 (Version 1)
Quarter: 2015Q4

REPORT INFORMATION
  Report Type: Spontaneous
  Country: US (occurrence: US)
  Receive Date: 20151104
  Receipt Date: 20151104
  Transmission Date: 20160304
  Serious: No
  Sender: FDA-Public Use
  Company Number: US-TEVA-606327ACC

PATIENT
  Sex: Female

DRUGS (3)
  1. PLAN B ONE-STEP [Suspect]
     Active Substance: LEVONORGESTREL
     Indication: POST COITAL CONTRACEPTION
     Dates: start: 201508
  2. PLAN B ONE-STEP [Suspect]
     Active Substance: LEVONORGESTREL
     Indication: POST COITAL CONTRACEPTION
     Dates: start: 20151026
  3. PLAN B ONE-STEP [Suspect]
     Active Substance: LEVONORGESTREL
     Indication: POST COITAL CONTRACEPTION
     Dates: start: 201509

REACTIONS (1)
  - Menstruation delayed [Not Recovered/Not Resolved]

NARRATIVE: CASE EVENT DATE: 201508
